FAERS Safety Report 25809080 (Version 1)
Quarter: 2025Q3

REPORT INFORMATION
  Report Type: Spontaneous
  Country: CN (occurrence: CN)
  Receive Date: 20250916
  Receipt Date: 20250916
  Transmission Date: 20251021
  Serious: Yes (Hospitalization)
  Sender: ELI LILLY AND COMPANY
  Company Number: CN-ELI_LILLY_AND_COMPANY-CN202509006512

PATIENT
  Age: 70 Year
  Sex: Male
  Weight: 91.5 kg

DRUGS (2)
  1. TIRZEPATIDE [Suspect]
     Active Substance: TIRZEPATIDE
     Indication: Diabetes mellitus
     Dosage: 2.5 MG, WEEKLY (1/W)
     Route: 058
     Dates: start: 20250830, end: 20250830
  2. TIRZEPATIDE [Suspect]
     Active Substance: TIRZEPATIDE
     Indication: Diabetes mellitus
     Dosage: 2.5 MG, WEEKLY (1/W)
     Route: 058
     Dates: start: 20250830, end: 20250830

REACTIONS (8)
  - Hepatic steatosis [Recovering/Resolving]
  - Aortic arteriosclerosis [Recovering/Resolving]
  - Perinephric oedema [Recovering/Resolving]
  - Vomiting [Recovered/Resolved]
  - Abdominal pain upper [Recovered/Resolved]
  - Nausea [Recovered/Resolved]
  - Diarrhoea [Recovering/Resolving]
  - Neutrophil percentage increased [Recovering/Resolving]

NARRATIVE: CASE EVENT DATE: 20250830
